FAERS Safety Report 6204045-0 (Version None)
Quarter: 2009Q2

REPORT INFORMATION
  Report Type: 
  Country: None (occurrence: None)
  Receive Date: 20090526
  Receipt Date: 20090526
  Transmission Date: 20091009
  Serious: No
  Sender: FDA-Public Use
  Company Number: None

PATIENT
  Age: 42 Year
  Sex: Female
  Weight: 106.5953 kg

DRUGS (2)
  1. LEVETIRACETAM [Suspect]
     Indication: CONVULSION
     Dosage: 500MG 1-TWICE/DAY PO
     Route: 048
     Dates: start: 20090316, end: 20090402
  2. LEVETIRACETAM [Suspect]
     Indication: CONVULSION
     Dosage: 500MG 2-TWICE/DAY PO
     Route: 048
     Dates: start: 20090402, end: 20090502

REACTIONS (2)
  - CONVULSION [None]
  - PRODUCT SUBSTITUTION ISSUE [None]
